FAERS Safety Report 6387973-5 (Version None)
Quarter: 2009Q4

REPORT INFORMATION
  Report Type: 
  Country: None (occurrence: None)
  Receive Date: 20091005
  Receipt Date: 20090925
  Transmission Date: 20100525
  Serious: Yes (Hospitalization, Other)
  Sender: FDA-Public Use
  Company Number: CA-AMGEN-KDL291018

PATIENT
  Sex: Female
  Weight: 49.9 kg

DRUGS (11)
  1. ENBREL [Suspect]
     Indication: RHEUMATOID ARTHRITIS
     Route: 058
     Dates: start: 20070914
  2. PREDNISONE TAB [Concomitant]
     Route: 048
  3. TRIAMCINOLONE [Concomitant]
     Route: 061
  4. METRONIDAZOLE [Concomitant]
  5. ARTHROTEC [Concomitant]
  6. DETROL [Concomitant]
  7. ESTRADIOL [Concomitant]
  8. PREMARIN [Concomitant]
     Route: 061
  9. LEFLUNOMIDE [Concomitant]
     Dates: end: 20080301
  10. FOSAMAX [Concomitant]
  11. HYDROCHLOROTHIAZIDE [Concomitant]

REACTIONS (6)
  - HIP ARTHROPLASTY [None]
  - INCISION SITE INFECTION [None]
  - INJECTION SITE HAEMATOMA [None]
  - INJECTION SITE HAEMORRHAGE [None]
  - KNEE ARTHROPLASTY [None]
  - ORAL LICHEN PLANUS [None]
